FAERS Safety Report 7205373-2 (Version None)
Quarter: 2010Q4

REPORT INFORMATION
  Report Type: 
  Country: None (occurrence: None)
  Receive Date: 20101231
  Receipt Date: 20101222
  Transmission Date: 20110411
  Serious: Yes (Other)
  Sender: FDA-Public Use
  Company Number: US-US-EMD SERONO, INC.-7027992

PATIENT
  Sex: Female

DRUGS (9)
  1. REBIF [Suspect]
     Route: 058
     Dates: start: 20100813
  2. ACETAMINOPHEN [Concomitant]
     Indication: PREMEDICATION
  3. TOPAMAX [Concomitant]
     Indication: MIGRAINE
  4. VERAPAMIL [Concomitant]
     Indication: MIGRAINE
  5. PROVIGIL [Concomitant]
     Indication: FATIGUE
  6. BIRTH CONTROL PILL [Concomitant]
  7. BACLOFEN [Concomitant]
     Indication: MULTIPLE SCLEROSIS
  8. FIORICET [Concomitant]
     Indication: MIGRAINE
  9. NAPROXEN [Concomitant]
     Indication: DYSMENORRHOEA

REACTIONS (4)
  - CENTRAL NERVOUS SYSTEM LESION [None]
  - INJECTION SITE HAEMATOMA [None]
  - MULTIPLE SCLEROSIS RELAPSE [None]
  - OPTIC NEURITIS [None]
